FAERS Safety Report 4745911-2 (Version None)
Quarter: 2005Q3

REPORT INFORMATION
  Report Type: 
  Country: None (occurrence: None)
  Receive Date: 20050816
  Receipt Date: 20050809
  Transmission Date: 20060218
  Serious: Yes (Other)
  Sender: FDA-Public Use
  Company Number: 2005PK01496

PATIENT
  Weight: 1.5 kg

DRUGS (1)
  1. ATENOLOL [Suspect]
     Indication: CARDIAC FAILURE
     Dates: start: 20050808, end: 20050808

REACTIONS (4)
  - ACCIDENTAL OVERDOSE [None]
  - BRADYCARDIA [None]
  - HYPOGLYCAEMIA NEONATAL [None]
  - MEDICATION ERROR [None]
